FAERS Safety Report 14189449 (Version 6)
Quarter: 2018Q1

REPORT INFORMATION
  Report Type: Spontaneous
  Country: KR (occurrence: KR)
  Receive Date: 20171115
  Receipt Date: 20180216
  Transmission Date: 20180508
  Serious: Yes (Death, Hospitalization, Other)
  Sender: FDA-Public Use
  Company Number: KR-AMGEN-KORSP2017170900

PATIENT
  Age: 56 Year
  Sex: Female

DRUGS (14)
  1. TACROLIMUS. [Concomitant]
     Active Substance: TACROLIMUS
     Dosage: 1.5 MG, BID
     Route: 048
     Dates: start: 20161217, end: 20171019
  2. PEGFILGRASTIM [Suspect]
     Active Substance: PEGFILGRASTIM
     Indication: DIFFUSE LARGE B-CELL LYMPHOMA
     Dosage: 6 MG, UNK, C1D4
     Route: 058
     Dates: start: 20170909, end: 20170909
  3. GANCICLOVIR. [Concomitant]
     Active Substance: GANCICLOVIR
     Dosage: 135 MG, QD
     Route: 042
     Dates: start: 20171011, end: 20180123
  4. RITUXIMAB. [Suspect]
     Active Substance: RITUXIMAB
     Dosage: 1400 MG, C2D1
     Route: 058
     Dates: start: 20170927, end: 20170927
  5. BENDAMUSTINE [Suspect]
     Active Substance: BENDAMUSTINE
     Dosage: 133 MG/M2, UNK (C2D1,2)
     Route: 042
     Dates: start: 20170927, end: 20170928
  6. TABAXIN [Concomitant]
     Active Substance: PIPERACILLIN SODIUM\TAZOBACTAM SODIUM
     Dosage: 4.5 MG, TID
     Route: 042
     Dates: start: 20171019, end: 20171023
  7. BENDAMUSTINE [Suspect]
     Active Substance: BENDAMUSTINE
     Indication: DIFFUSE LARGE B-CELL LYMPHOMA
     Dosage: 185 MG/M2, UNK (CYCLE 1 DAY 2,3)
     Route: 042
     Dates: start: 20170907, end: 20170908
  8. TACROLIMUS. [Concomitant]
     Active Substance: TACROLIMUS
     Dosage: UNK
  9. TEICOPLANIN [Concomitant]
     Active Substance: TEICOPLANIN
     Dosage: 400 MG, BID
     Route: 042
     Dates: start: 20171023, end: 20180123
  10. RITUXIMAB. [Suspect]
     Active Substance: RITUXIMAB
     Indication: DIFFUSE LARGE B-CELL LYMPHOMA
     Dosage: 577.5 MG, UNK, C1D1 (375 MG/M2)
     Route: 042
     Dates: start: 20170906, end: 20170906
  11. TEICOPLANIN [Concomitant]
     Active Substance: TEICOPLANIN
     Dosage: UNK
  12. PEGFILGRASTIM [Suspect]
     Active Substance: PEGFILGRASTIM
     Dosage: 6 MG, UNK (C2D3)
     Route: 058
     Dates: start: 20170928, end: 20170928
  13. GANCICLOVIR. [Concomitant]
     Active Substance: GANCICLOVIR
     Dosage: 260 MG, UNK
     Route: 042
  14. MEROPENEM. [Concomitant]
     Active Substance: MEROPENEM
     Dosage: 400 MG, TID
     Route: 042
     Dates: start: 20171023, end: 20180123

REACTIONS (2)
  - Platelet count decreased [Fatal]
  - Cytopenia [Unknown]

NARRATIVE: CASE EVENT DATE: 20171010
